FAERS Safety Report 10347000 (Version 1)
Quarter: 2014Q3

REPORT INFORMATION
  Report Type: Spontaneous
  Country: US (occurrence: None)
  Receive Date: 20140725
  Receipt Date: 20140725
  Transmission Date: 20150326
  Serious: Yes (Disabling)
  Sender: FDA-Public Use
  Company Number: None

PATIENT
  Age: 49 Year
  Sex: Female
  Weight: 74.84 kg

DRUGS (1)
  1. DULOXETINE HCL [Suspect]
     Active Substance: DULOXETINE HYDROCHLORIDE
     Indication: NEURALGIA
     Route: 048
     Dates: start: 20140310, end: 20140706

REACTIONS (8)
  - Tremor [None]
  - Vision blurred [None]
  - Restlessness [None]
  - Nervous system disorder [None]
  - Sudden hearing loss [None]
  - Flat affect [None]
  - Drug withdrawal syndrome [None]
  - Asthenia [None]

NARRATIVE: CASE EVENT DATE: 20140706
